FAERS Safety Report 7098171-4 (Version None)
Quarter: 2010Q4

REPORT INFORMATION
  Report Type: 
  Country: None (occurrence: None)
  Receive Date: 20101112
  Receipt Date: 20101103
  Transmission Date: 20110411
  Serious: Yes (Hospitalization)
  Sender: FDA-Public Use
  Company Number: CZ-BRISTOL-MYERS SQUIBB COMPANY-15009939

PATIENT
  Age: 62 Year
  Sex: Male
  Weight: 96 kg

DRUGS (4)
  1. CETUXIMAB [Suspect]
     Indication: NON-SMALL CELL LUNG CANCER
     Dosage: CETUXIMAB 5MG/ML,MOST RECENT INF 03MAR2010
     Route: 042
     Dates: start: 20091119
  2. CISPLATIN [Suspect]
     Indication: NON-SMALL CELL LUNG CANCER
     Dosage: DAY1,8,,21DAY CYCLE
     Route: 042
     Dates: start: 20091119, end: 20100127
  3. CARBOPLATIN [Suspect]
     Indication: NON-SMALL CELL LUNG CANCER
     Dosage: 1DF-5AUC
     Route: 042
     Dates: start: 20100217
  4. VINORELBINE [Suspect]
     Indication: NON-SMALL CELL LUNG CANCER
     Dosage: ON DAY 1,8,21DAY CYCLE MOST RECENT ON 24-FEB-2010
     Route: 042
     Dates: start: 20091119

REACTIONS (3)
  - ARRHYTHMIA SUPRAVENTRICULAR [None]
  - ASTHENIA [None]
  - HYPOTENSION [None]
